FAERS Safety Report 16483462 (Version 1)
Quarter: 2019Q2

REPORT INFORMATION
  Report Type: Spontaneous
  Country: FR (occurrence: FR)
  Receive Date: 20190627
  Receipt Date: 20190627
  Transmission Date: 20190711
  Serious: Yes (Other)
  Sender: FDA-Public Use
  Company Number: FR-JNJFOC-20190622877

PATIENT
  Age: 66 Year
  Sex: Male
  Weight: 122 kg

DRUGS (9)
  1. AUGMENTIN [Suspect]
     Active Substance: AMOXICILLIN\CLAVULANATE POTASSIUM
     Indication: LOCALISED INFECTION
     Dosage: 1 DF, 1/DAY
     Route: 048
     Dates: start: 20190508, end: 20190510
  2. TAREG [Suspect]
     Active Substance: VALSARTAN
     Indication: HYPERTENSION
     Dosage: 160 MG, 1/DAY
     Route: 048
     Dates: start: 20190506, end: 20190510
  3. LERCANIDIPINE [Concomitant]
     Active Substance: LERCANIDIPINE
     Indication: PRODUCT USED FOR UNKNOWN INDICATION
     Dosage: UNK
  4. TRAMADOL HYDROCHLORIDE. [Suspect]
     Active Substance: TRAMADOL HYDROCHLORIDE
     Indication: PAIN
     Dosage: 300 MG, 1/DAY
     Route: 042
     Dates: start: 20190506, end: 20190510
  5. PARACETAMOL [Concomitant]
     Active Substance: ACETAMINOPHEN
  6. GALVUS [Concomitant]
     Active Substance: VILDAGLIPTIN
     Indication: PRODUCT USED FOR UNKNOWN INDICATION
     Dosage: UNK
  7. ESIDREX [Concomitant]
     Active Substance: HYDROCHLOROTHIAZIDE
     Indication: PRODUCT USED FOR UNKNOWN INDICATION
     Dosage: UNK
  8. ZOPHREN                            /00955301/ [Suspect]
     Active Substance: ONDANSETRON
     Indication: ANAESTHETIC PREMEDICATION
     Dosage: UNK
     Route: 042
     Dates: start: 20190506, end: 20190510
  9. LANTUS [Concomitant]
     Active Substance: INSULIN GLARGINE
     Indication: PRODUCT USED FOR UNKNOWN INDICATION
     Dosage: UNK

REACTIONS (2)
  - Urticaria [Recovered/Resolved]
  - Eosinophilia [Recovered/Resolved]

NARRATIVE: CASE EVENT DATE: 20190510
